FAERS Safety Report 20986319 (Version 27)
Quarter: 2023Q1

REPORT INFORMATION
  Report Type: Spontaneous
  Country: GB (occurrence: GB)
  Receive Date: 20220621
  Receipt Date: 20230131
  Transmission Date: 20230417
  Serious: Yes (Hospitalization, Other)
  Sender: FDA-Public Use
  Company Number: None

PATIENT
  Age: 61 Year
  Sex: Female
  Weight: 61.6 kg

DRUGS (28)
  1. METFORMIN [Suspect]
     Active Substance: METFORMIN HYDROCHLORIDE
     Indication: Product used for unknown indication
     Dosage: 2 G
     Route: 048
  2. METFORMIN HYDROCHLORIDE [Suspect]
     Active Substance: METFORMIN HYDROCHLORIDE
     Indication: Product used for unknown indication
     Dosage: 2 GRAM
     Route: 065
  3. DOCETAXEL [Suspect]
     Active Substance: DOCETAXEL
     Indication: Breast cancer
     Dosage: 80 MILLIGRAM (INITIATED ON 12/OCT/2012) 80 MG, UNK
     Route: 065
     Dates: start: 20121012
  4. DOCETAXEL [Suspect]
     Active Substance: DOCETAXEL
     Indication: Breast cancer
     Dosage: 120 MILLIGRAM
     Route: 065
     Dates: start: 20120817, end: 2012
  5. DOCETAXEL [Suspect]
     Active Substance: DOCETAXEL
     Dosage: 120 MG
     Route: 065
     Dates: start: 20121210
  6. TRASTUZUMAB [Suspect]
     Active Substance: TRASTUZUMAB
     Indication: Breast cancer
     Dosage: 420 MILLIGRAM (INITIATED 12/OCT/2012)
     Route: 042
     Dates: start: 20121012
  7. TRASTUZUMAB [Suspect]
     Active Substance: TRASTUZUMAB
     Dosage: INTRAVENOUS INFUSION, INTRAVENOUS DRIP
     Route: 042
     Dates: start: 20120817
  8. TRASTUZUMAB [Suspect]
     Active Substance: TRASTUZUMAB
     Route: 058
     Dates: start: 20120817
  9. TRASTUZUMAB [Suspect]
     Active Substance: TRASTUZUMAB
     Dosage: 420 MILLIGRAM (INITIATED 12/OCT/2012)
     Route: 042
     Dates: start: 20121012
  10. PERTUZUMAB [Suspect]
     Active Substance: PERTUZUMAB
     Indication: Breast cancer
     Dosage: 1 MG, Q3W (DATE OF LAST DOSE PRIOR TO SAE: 12/OCT/2012) CUMULATIVE DOSE TO FIRST REACTION- 0.158MG
     Route: 042
     Dates: start: 20120817, end: 20121012
  11. PERTUZUMAB [Suspect]
     Active Substance: PERTUZUMAB
     Indication: Breast cancer
     Dosage: UNK
     Route: 042
     Dates: start: 20121012
  12. CARBOPLATIN [Suspect]
     Active Substance: CARBOPLATIN
     Indication: Breast cancer
     Dosage: 750 MILLIGRAM
     Route: 065
     Dates: start: 20120817
  13. CARBOPLATIN [Suspect]
     Active Substance: CARBOPLATIN
     Dosage: 500 MILLIGRAM (INITIATED 12/OCT/2012)
     Route: 065
     Dates: start: 20121012
  14. ONDANSETRON [Concomitant]
     Active Substance: ONDANSETRON
     Indication: Product used for unknown indication
     Route: 042
     Dates: start: 20120817
  15. ONDANSETRON [Concomitant]
     Active Substance: ONDANSETRON
     Route: 048
     Dates: start: 20120914, end: 20120918
  16. ONDANSETRON [Concomitant]
     Active Substance: ONDANSETRON
     Route: 042
     Dates: start: 20120817, end: 20120821
  17. ONDANSETRON [Concomitant]
     Active Substance: ONDANSETRON
     Dosage: 4-6 MG
     Route: 048
     Dates: start: 20121012, end: 20121018
  18. ONDANSETRON [Concomitant]
     Active Substance: ONDANSETRON
     Route: 048
     Dates: start: 20120817, end: 20120821
  19. RANITIDINE [Concomitant]
     Active Substance: RANITIDINE
     Indication: Product used for unknown indication
     Dosage: BOLUS
     Route: 042
     Dates: start: 20120817
  20. FILGRASTIM [Concomitant]
     Active Substance: FILGRASTIM
     Indication: Product used for unknown indication
     Dosage: UNK
     Route: 065
     Dates: start: 20120818, end: 20120823
  21. FILGRASTIM [Concomitant]
     Active Substance: FILGRASTIM
     Dates: start: 20121012, end: 20121019
  22. FILGRASTIM [Concomitant]
     Active Substance: FILGRASTIM
     Dates: start: 20120914, end: 20120920
  23. DEXAMETHASONE [Concomitant]
     Active Substance: DEXAMETHASONE
     Indication: Product used for unknown indication
     Route: 065
     Dates: start: 20120816, end: 20120818
  24. GLICLAZIDE [Concomitant]
     Active Substance: GLICLAZIDE
     Indication: Product used for unknown indication
  25. CHLORPHENIRAMINE MALEATE [Concomitant]
     Active Substance: CHLORPHENIRAMINE MALEATE
     Indication: Product used for unknown indication
     Dosage: BOLUS
     Route: 042
     Dates: start: 20120817
  26. SIMVASTATIN [Concomitant]
     Active Substance: SIMVASTATIN
     Indication: Product used for unknown indication
     Dosage: UNK
  27. CALCIUM\CHOLECALCIFEROL [Concomitant]
     Active Substance: CALCIUM\CHOLECALCIFEROL
     Indication: Product used for unknown indication
     Dosage: UNK
     Dates: start: 20120817
  28. METOCLOPRAMIDE [Concomitant]
     Active Substance: METOCLOPRAMIDE
     Indication: Product used for unknown indication
     Dosage: 40-80 MG
     Dates: start: 20120914, end: 20120920

REACTIONS (7)
  - Vomiting [Recovering/Resolving]
  - Diarrhoea [Recovered/Resolved]
  - Diarrhoea [Recovered/Resolved]
  - Nausea [Recovering/Resolving]
  - Off label use [Unknown]
  - Off label use [Recovered/Resolved]
  - Off label use [Unknown]

NARRATIVE: CASE EVENT DATE: 20120817
